FAERS Safety Report 9741715 (Version 2)
Quarter: 2014Q1

REPORT INFORMATION
  Report Type: Spontaneous
  Country: US (occurrence: US)
  Receive Date: 20131210
  Receipt Date: 20140102
  Transmission Date: 20141002
  Serious: Yes (Hospitalization)
  Sender: FDA-Public Use
  Company Number: US-JNJFOC-20131200731

PATIENT
  Age: 22 Year
  Sex: Male
  Weight: 90.9 kg

DRUGS (1)
  1. RISPERDAL CONSTA [Suspect]
     Indication: SCHIZOPHRENIA
     Route: 030
     Dates: start: 20131123

REACTIONS (3)
  - Adverse event [Unknown]
  - Drug ineffective [Unknown]
  - Drug dose omission [Unknown]
